FAERS Safety Report 9677612 (Version 3)
Quarter: 2014Q2

REPORT INFORMATION
  Report Type: Report from Study
  Country: CA (occurrence: CA)
  Receive Date: 20131108
  Receipt Date: 20140611
  Transmission Date: 20141212
  Serious: Yes (Hospitalization)
  Sender: FDA-Public Use
  Company Number: CA-JNJFOC-20131016831

PATIENT
  Age: 38 Year
  Sex: Male
  Weight: 115 kg

DRUGS (4)
  1. REMICADE [Suspect]
     Indication: ANKYLOSING SPONDYLITIS
     Dosage: ONCE EVERY 8 WEEKS AFTER INDUCTION DOSES
     Route: 042
  2. REMICADE [Suspect]
     Indication: ANKYLOSING SPONDYLITIS
     Dosage: ONCE EVERY 8 WEEKS AFTER INDUCTION DOSES
     Route: 042
  3. REMICADE [Suspect]
     Indication: CROHN^S DISEASE
     Dosage: ONCE EVERY 8 WEEKS AFTER INDUCTION DOSES
     Route: 042
  4. REMICADE [Suspect]
     Indication: CROHN^S DISEASE
     Dosage: ONCE EVERY 8 WEEKS AFTER INDUCTION DOSES
     Route: 042

REACTIONS (1)
  - Incisional hernia [Not Recovered/Not Resolved]
